FAERS Safety Report 22364842 (Version 1)
Quarter: 2023Q2

REPORT INFORMATION
  Report Type: Spontaneous
  Country: ES (occurrence: ES)
  Receive Date: 20230525
  Receipt Date: 20230525
  Transmission Date: 20230721
  Serious: Yes (Other)
  Sender: FDA-Public Use
  Company Number: ES-LESVI-2023001933

PATIENT
  Age: 35 Year
  Sex: Female

DRUGS (2)
  1. PAROXETINE [Suspect]
     Active Substance: PAROXETINE
     Indication: Product used for unknown indication
     Dosage: 60 MILLIGRAM, ONCE A DAY
     Route: 048
  2. SERTRALINE HYDROCHLORIDE [Suspect]
     Active Substance: SERTRALINE HYDROCHLORIDE
     Indication: Mixed anxiety and depressive disorder
     Dosage: 50-150 MG/DAY
     Route: 048

REACTIONS (14)
  - Perinatal depression [Unknown]
  - Exposure during pregnancy [Unknown]
  - Mixed anxiety and depressive disorder [Unknown]
  - Emotional distress [Unknown]
  - Tearfulness [Unknown]
  - Negative thoughts [Unknown]
  - Insomnia [Unknown]
  - Malaise [Unknown]
  - Decreased appetite [Unknown]
  - Generalised anxiety disorder [Unknown]
  - Morning sickness [Unknown]
  - Weight decreased [Unknown]
  - Fatigue [Unknown]
  - Lactation disorder [Unknown]
